FAERS Safety Report 9827195 (Version 1)
Quarter: 2014Q1

REPORT INFORMATION
  Report Type: Spontaneous
  Country: US (occurrence: US)
  Receive Date: 20140117
  Receipt Date: 20140117
  Transmission Date: 20141002
  Serious: Yes (Other)
  Sender: FDA-Public Use
  Company Number: US-GLAXOSMITHKLINE-A1046367A

PATIENT
  Age: 80 Year
  Sex: Female

DRUGS (1)
  1. PROMACTA [Suspect]
     Indication: THROMBOCYTOPENIA
     Dosage: 50MG PER DAY
     Route: 065

REACTIONS (8)
  - Hepatitis C [Unknown]
  - Contusion [Unknown]
  - Pain in extremity [Unknown]
  - Local swelling [Unknown]
  - Fall [Unknown]
  - Bed rest [Unknown]
  - Laceration [Unknown]
  - Drug dispensing error [Unknown]
